FAERS Safety Report 8016520-7 (Version None)
Quarter: 2011Q4

REPORT INFORMATION
  Report Type: 
  Country: None (occurrence: None)
  Receive Date: 20111230
  Receipt Date: 20111222
  Transmission Date: 20120403
  Serious: Yes (Death)
  Sender: FDA-Public Use
  Company Number: US-SANOFI-AVENTIS-2011SA084730

PATIENT
  Age: 73 Year
  Sex: Female

DRUGS (5)
  1. METHOTREXATE [Suspect]
     Route: 048
  2. DILTIAZEM [Suspect]
     Dosage: PROLONGED RELEASE TABLET
     Route: 048
  3. HYDROXYCHLOROQUINE [Suspect]
     Route: 048
  4. BENAZEPRIL HYDROCHLORIDE [Suspect]
     Route: 048
  5. ATENOLOL [Suspect]
     Route: 048

REACTIONS (4)
  - CARDIAC ARREST [None]
  - RESPIRATORY ARREST [None]
  - TOXICITY TO VARIOUS AGENTS [None]
  - MEDICATION ERROR [None]
